FAERS Safety Report 13602061 (Version 1)
Quarter: 2017Q2

REPORT INFORMATION
  Report Type: Spontaneous
  Country: JP (occurrence: JP)
  Receive Date: 20170601
  Receipt Date: 20170601
  Transmission Date: 20170830
  Serious: Yes (Disabling, Other)
  Sender: FDA-Public Use
  Company Number: JP-GUERBET-JP-20160221

PATIENT
  Age: 0 Day

DRUGS (2)
  1. LIPIODOL [Suspect]
     Active Substance: ETHIODIZED OIL
     Indication: X-RAY WITH CONTRAST
     Dosage: TOTAL 1-2ML LIPIODOL BY MOTHER^S AMNION LIQUID, 1-2ML OF CONTRAST MEDIA WAS ACCIDENTALY ADMINISTERED
     Route: 015
     Dates: start: 19960828, end: 19960828
  2. CONRAXIN H [Concomitant]
     Indication: X-RAY WITH CONTRAST
     Dosage: TOTAL 40ML CONRAXIN H BY  MOTHER^S AMNION LIQUID, 1-2ML OF CONTRAST MEDIA WAS ACCIDENTALY ADMINISTER
     Route: 015
     Dates: start: 19960828, end: 19960828

REACTIONS (5)
  - Peripheral paralysis [Not Recovered/Not Resolved]
  - Off label use [Unknown]
  - Medication residue present [Unknown]
  - Extremity necrosis [Unknown]
  - Wrong technique in product usage process [Unknown]

NARRATIVE: CASE EVENT DATE: 19960828
